FAERS Safety Report 14294088 (Version 1)
Quarter: 2017Q4

REPORT INFORMATION
  Report Type: Spontaneous
  Country: ES (occurrence: ES)
  Receive Date: 20171217
  Receipt Date: 20171217
  Transmission Date: 20180321
  Serious: Yes (Life-Threatening, Hospitalization)
  Sender: FDA-Public Use
  Company Number: ES-CIPLA LTD.-2017ES24786

PATIENT

DRUGS (7)
  1. DIACERIN [Concomitant]
     Dosage: UNK
     Route: 065
  2. BROMAZEPAM [Concomitant]
     Active Substance: BROMAZEPAM
     Dosage: UNK
     Route: 065
  3. SERTRALINE [Suspect]
     Active Substance: SERTRALINE HYDROCHLORIDE
     Dosage: 100 MG, UNK
     Route: 065
  4. IMATINIB [Interacting]
     Active Substance: IMATINIB
     Dosage: 400 MG, UNK
     Route: 065
  5. DULOXETINE. [Concomitant]
     Active Substance: DULOXETINE
     Dosage: UNK
     Route: 065
  6. METOCLOPRAMIDE. [Concomitant]
     Active Substance: METOCLOPRAMIDE
     Indication: VOMITING
     Dosage: UNK
     Route: 065
  7. OMEPRAZOLE. [Concomitant]
     Active Substance: OMEPRAZOLE
     Dosage: UNK
     Route: 065

REACTIONS (2)
  - Drug interaction [Recovering/Resolving]
  - Hepatotoxicity [Recovering/Resolving]
